FAERS Safety Report 5245266-3 (Version None)
Quarter: 2007Q1

REPORT INFORMATION
  Report Type: 
  Country: None (occurrence: None)
  Receive Date: 20070223
  Receipt Date: 20070214
  Transmission Date: 20070707
  Serious: Yes (Other)
  Sender: FDA-Public Use
  Company Number: US-GLAXOSMITHKLINE-A0520106A

PATIENT
  Age: 35 Year
  Sex: Male

DRUGS (1)
  1. PAXIL [Suspect]
     Route: 065

REACTIONS (3)
  - AGGRESSION [None]
  - DISSOCIATION [None]
  - MEMORY IMPAIRMENT [None]
